FAERS Safety Report 11814669 (Version 1)
Quarter: 2015Q4

REPORT INFORMATION
  Report Type: Spontaneous
  Country: US (occurrence: None)
  Receive Date: 20151208
  Receipt Date: 20151208
  Transmission Date: 20160305
  Serious: Yes (Disabling, Other)
  Sender: FDA-Public Use
  Company Number: None

PATIENT
  Age: 68 Year
  Sex: Female
  Weight: 113.4 kg

DRUGS (2)
  1. ZOLOFT - GENERIC NOT BRAND - NAME [Suspect]
     Active Substance: SERTRALINE HYDROCHLORIDE
     Indication: DEPRESSION
     Route: 048
  2. XANAX [Concomitant]
     Active Substance: ALPRAZOLAM

REACTIONS (2)
  - Drug ineffective [None]
  - Urticaria [None]

NARRATIVE: CASE EVENT DATE: 20141212
